FAERS Safety Report 8832839 (Version 1)
Quarter: 2012Q4

REPORT INFORMATION
  Report Type: 
  Country: DE (occurrence: DE)
  Receive Date: 20121010
  Receipt Date: 20121010
  Transmission Date: 20130627
  Serious: Yes (Hospitalization)
  Sender: FDA-Public Use
  Company Number: DE-AMGEN-DEUSP2012063681

PATIENT
  Age: 77 Year
  Sex: Male

DRUGS (6)
  1. FILGRASTIM [Suspect]
     Indication: PRODUCT USED FOR UNKNOWN INDICATION
     Dosage: UNK mg/m2, UNK
  2. CYCLOPHOSPHAMIDE [Suspect]
     Indication: NON-HODGKIN^S LYMPHOMA
  3. RITUXIMAB [Suspect]
     Indication: NON-HODGKIN^S LYMPHOMA
     Dosage: 375 mg/m2, UNK
     Route: 042
  4. DOXORUBICIN [Suspect]
     Indication: NON-HODGKIN^S LYMPHOMA
  5. VINCRISTINE [Suspect]
     Indication: NON-HODGKIN^S LYMPHOMA
  6. PREDNISOLONE [Suspect]
     Indication: NON-HODGKIN^S LYMPHOMA

REACTIONS (2)
  - General physical health deterioration [Unknown]
  - Upper respiratory tract infection [Recovered/Resolved]
